FAERS Safety Report 25161875 (Version 1)
Quarter: 2025Q2

REPORT INFORMATION
  Report Type: Report from Study
  Country: US (occurrence: US)
  Receive Date: 20250404
  Receipt Date: 20250404
  Transmission Date: 20250717
  Serious: Yes (Other)
  Sender: EISAI
  Company Number: US-Eisai-EC-2025-184076

PATIENT
  Age: 72 Year
  Sex: Female

DRUGS (14)
  1. LENVIMA [Suspect]
     Active Substance: LENVATINIB
     Indication: Endometrial cancer
     Dates: start: 20250110, end: 20250216
  2. LENVIMA [Suspect]
     Active Substance: LENVATINIB
     Dates: start: 20250227
  3. EXCEDRIN [Suspect]
     Active Substance: ACETAMINOPHEN\ASPIRIN\CAFFEINE
     Indication: Migraine
  4. HYDROCODONE [Concomitant]
     Active Substance: HYDROCODONE
  5. KEYTRUDA [Concomitant]
     Active Substance: PEMBROLIZUMAB
     Indication: Endometrial cancer
  6. METAMUCIL [Concomitant]
     Active Substance: PLANTAGO SEED
  7. PROCHLORPERAZINE [Concomitant]
     Active Substance: PROCHLORPERAZINE
  8. TRAZODONE HCL [Concomitant]
     Active Substance: TRAZODONE HYDROCHLORIDE
  9. CITALOPRAM [Concomitant]
     Active Substance: CITALOPRAM
  10. IBUPROFEN [Concomitant]
     Active Substance: IBUPROFEN
  11. LEVOTHYROXINE [Concomitant]
     Active Substance: LEVOTHYROXINE
  12. OMEPRAZOLE [Concomitant]
     Active Substance: OMEPRAZOLE
  13. PANTOPRAZOLE [Concomitant]
     Active Substance: PANTOPRAZOLE
  14. SUMATRIPTAN [Concomitant]
     Active Substance: SUMATRIPTAN

REACTIONS (17)
  - Pulmonary embolism [Recovering/Resolving]
  - Diplopia [Unknown]
  - Pain [Unknown]
  - Fatigue [Unknown]
  - Decreased appetite [Unknown]
  - Constipation [Unknown]
  - Urinary tract discomfort [Unknown]
  - Abdominal discomfort [Unknown]
  - Palmar-plantar erythrodysaesthesia syndrome [Unknown]
  - Blood magnesium decreased [Unknown]
  - Restless legs syndrome [Unknown]
  - Insomnia [Unknown]
  - Discomfort [Unknown]
  - Nausea [Unknown]
  - Migraine [Unknown]
  - Photopsia [Unknown]
  - Gallbladder hypofunction [Recovering/Resolving]

NARRATIVE: CASE EVENT DATE: 20250101
